FAERS Safety Report 25332538 (Version 1)
Quarter: 2025Q2

REPORT INFORMATION
  Report Type: Spontaneous
  Country: MX (occurrence: MX)
  Receive Date: 20250519
  Receipt Date: 20250519
  Transmission Date: 20250717
  Serious: Yes (Hospitalization)
  Sender: PFIZER
  Company Number: MX-PFIZER INC-202500102250

PATIENT
  Age: 58 Year
  Sex: Female

DRUGS (1)
  1. LORBRENA [Suspect]
     Active Substance: LORLATINIB
     Indication: Lung neoplasm malignant
     Dosage: 100 MG, DAILY

REACTIONS (2)
  - Metastases to central nervous system [Recovering/Resolving]
  - Brain abscess [Recovering/Resolving]
